FAERS Safety Report 25790244 (Version 1)
Quarter: 2025Q3

REPORT INFORMATION
  Report Type: Spontaneous
  Country: US (occurrence: US)
  Receive Date: 20250911
  Receipt Date: 20250911
  Transmission Date: 20251021
  Serious: Yes (Other)
  Sender: ROCHE
  Company Number: US-ROCHE-3554734

PATIENT
  Sex: Female

DRUGS (1)
  1. OCRELIZUMAB [Suspect]
     Active Substance: OCRELIZUMAB
     Indication: Multiple sclerosis
     Route: 065

REACTIONS (4)
  - Maternal exposure during pregnancy [Unknown]
  - Sinusitis [Unknown]
  - Maternal exposure before pregnancy [Unknown]
  - Cephalo-pelvic disproportion [Unknown]
